FAERS Safety Report 19764140 (Version 2)
Quarter: 2021Q4

REPORT INFORMATION
  Report Type: Spontaneous
  Country: GB (occurrence: GB)
  Receive Date: 20210831
  Receipt Date: 20211028
  Transmission Date: 20220303
  Serious: Yes (Death, Other)
  Sender: FDA-Public Use
  Company Number: GB-MHRA-EYC 00258659

PATIENT
  Age: 47 Year
  Sex: Male
  Weight: 115 kg

DRUGS (5)
  1. METFORMIN [Suspect]
     Active Substance: METFORMIN HYDROCHLORIDE
     Indication: Diabetes mellitus
     Dosage: 1 GRAM, ONCE A DAY
     Route: 048
  2. METFORMIN [Suspect]
     Active Substance: METFORMIN HYDROCHLORIDE
     Dosage: 1 G, BID (EVERY 0.5 DAY);
     Route: 065
  3. BISOPROLOL [Suspect]
     Active Substance: BISOPROLOL
     Indication: Product used for unknown indication
     Dosage: UNK
     Route: 065
  4. JARDIANCE [Suspect]
     Active Substance: EMPAGLIFLOZIN
     Indication: Diabetes mellitus
     Dosage: 25 MILLIGRAM, DAILY
     Route: 048
  5. OMEPRAZOLE [Suspect]
     Active Substance: OMEPRAZOLE
     Indication: Product used for unknown indication
     Dosage: UNK
     Route: 065

REACTIONS (4)
  - Euglycaemic diabetic ketoacidosis [Fatal]
  - Lactic acidosis [Fatal]
  - Acute kidney injury [Fatal]
  - Vomiting [Unknown]

NARRATIVE: CASE EVENT DATE: 20210813
